FAERS Safety Report 13008879 (Version 1)
Quarter: 2016Q4

REPORT INFORMATION
  Report Type: Spontaneous
  Country: CN (occurrence: CN)
  Receive Date: 20161208
  Receipt Date: 20161208
  Transmission Date: 20170207
  Serious: Yes (Other)
  Sender: FDA-Public Use
  Company Number: CN-009507513-1611CHN013714

PATIENT
  Age: 16 Year
  Sex: Male

DRUGS (2)
  1. DIPROSPAN [Suspect]
     Active Substance: BETAMETHASONE DIPROPIONATE\BETAMETHASONE SODIUM PHOSPHATE
     Indication: ECZEMA
     Dosage: 7 MG, ONCE
  2. DIPROSPAN [Suspect]
     Active Substance: BETAMETHASONE DIPROPIONATE\BETAMETHASONE SODIUM PHOSPHATE
     Indication: TINEA INFECTION

REACTIONS (4)
  - Fall [Recovering/Resolving]
  - Tooth injury [Recovering/Resolving]
  - Vertigo [Recovering/Resolving]
  - Altered state of consciousness [Recovering/Resolving]
